FAERS Safety Report 10906958 (Version 2)
Quarter: 2016Q3

REPORT INFORMATION
  Report Type: Spontaneous
  Country: SE (occurrence: SE)
  Receive Date: 20150312
  Receipt Date: 20160923
  Transmission Date: 20161109
  Serious: No
  Sender: FDA-Public Use
  Company Number: SE-AMGEN-SWESP2015017704

PATIENT
  Age: 79 Year
  Sex: Female

DRUGS (6)
  1. XGEVA [Suspect]
     Active Substance: DENOSUMAB
     Indication: METASTASES TO BONE
     Dosage: UNK
     Route: 065
     Dates: start: 201401, end: 20141014
  2. CALCIUM [Concomitant]
     Active Substance: CALCIUM
     Dosage: UNK
  3. ALVEDON [Concomitant]
     Active Substance: ACETAMINOPHEN
     Dosage: UNK
  4. LETROZOL [Concomitant]
     Active Substance: LETROZOLE
     Dosage: UNK
  5. OMEPRAZOL                          /00661201/ [Concomitant]
     Active Substance: OMEPRAZOLE
     Dosage: UNK
  6. ARCOXIA [Concomitant]
     Active Substance: ETORICOXIB

REACTIONS (6)
  - Stomatitis [Unknown]
  - Oral disorder [Unknown]
  - Oral mucosal blistering [Unknown]
  - Jaw disorder [Unknown]
  - Oral pain [Unknown]
  - Palpitations [Unknown]

NARRATIVE: CASE EVENT DATE: 20141001
